FAERS Safety Report 10144057 (Version 1)
Quarter: 2014Q2

REPORT INFORMATION
  Report Type: Spontaneous
  Country: FR (occurrence: FR)
  Receive Date: 20140430
  Receipt Date: 20140430
  Transmission Date: 20141212
  Serious: Yes (Death, Life-Threatening)
  Sender: FDA-Public Use
  Company Number: FR-PFIZER INC-2014115848

PATIENT
  Age: 45 Year
  Sex: Male

DRUGS (7)
  1. LYRICA [Suspect]
     Dosage: 300 MG, UNK
     Route: 048
     Dates: start: 20131003, end: 20131109
  2. DUROGESIC [Suspect]
     Dosage: 100 UG ONCE EVERY 3 DAYS
     Route: 062
     Dates: start: 20131109, end: 20131109
  3. OXYNORM [Suspect]
     Dosage: 10MG TO 30MG DAILY
     Route: 048
     Dates: start: 20131109, end: 20131109
  4. TOPALGIC [Suspect]
     Dosage: 1 TO 3 DF DAILY
     Route: 048
     Dates: start: 20131109, end: 20131109
  5. TERCIAN [Suspect]
     Dosage: 50 GTT, 1X/DAY
     Dates: start: 20131003, end: 20131109
  6. IMOVANE [Suspect]
     Dosage: 7.5 MG, 1X/DAY
     Route: 048
     Dates: start: 20131008, end: 20131109
  7. SEROPLEX [Suspect]
     Dosage: 15 MG, 1X/DAY
     Route: 048
     Dates: start: 20131003, end: 20131109

REACTIONS (2)
  - Coma [Fatal]
  - Snoring [Unknown]
